FAERS Safety Report 8320878-9 (Version None)
Quarter: 2012Q2

REPORT INFORMATION
  Report Type: 
  Country: None (occurrence: None)
  Receive Date: 20120430
  Receipt Date: 20120424
  Transmission Date: 20120825
  Serious: Yes (Other)
  Sender: FDA-Public Use
  Company Number: PHHY2012GR035046

PATIENT
  Age: 50 Year
  Sex: Male

DRUGS (2)
  1. EXFORGE [Suspect]
     Indication: HYPERTENSION
     Dosage: 1 DF (160 MG VALSARTAN/ 5 MG AMLODIPINE), QD
  2. STATICIN [Concomitant]
     Indication: HYPERLIPIDAEMIA

REACTIONS (3)
  - PERIODONTITIS [None]
  - GINGIVITIS [None]
  - GINGIVAL HYPERPLASIA [None]
